FAERS Safety Report 6751591-7 (Version None)
Quarter: 2010Q2

REPORT INFORMATION
  Report Type: 
  Country: None (occurrence: None)
  Receive Date: 20100602
  Receipt Date: 20100528
  Transmission Date: 20101027
  Serious: Yes (Life-Threatening, Hospitalization)
  Sender: FDA-Public Use
  Company Number: FR-ROCHE-706264

PATIENT
  Sex: Female

DRUGS (3)
  1. ISOTRETINOIN [Suspect]
     Indication: ACNE
     Route: 048
     Dates: start: 20090901, end: 20100304
  2. PARACETAMOL [Concomitant]
  3. DEXTROPROPOXYPHENE [Concomitant]

REACTIONS (2)
  - DEPRESSION [None]
  - SUICIDE ATTEMPT [None]
